FAERS Safety Report 4563047-0 (Version None)
Quarter: 2005Q1

REPORT INFORMATION
  Report Type: 
  Country: None (occurrence: None)
  Receive Date: 20050125
  Receipt Date: 20041022
  Transmission Date: 20050727
  Serious: Yes (Disabling)
  Sender: FDA-Public Use
  Company Number: 9272

PATIENT
  Age: 76 Year
  Sex: Male

DRUGS (1)
  1. PAMIDRONATE DISODIUM [Suspect]
     Dosage: 30 MG ONCE
     Route: 042
     Dates: start: 20040601

REACTIONS (1)
  - VISUAL ACUITY REDUCED [None]
